FAERS Safety Report 22375536 (Version 1)
Quarter: 2023Q2

REPORT INFORMATION
  Report Type: Report from Study
  Country: TR (occurrence: TR)
  Receive Date: 20230527
  Receipt Date: 20230527
  Transmission Date: 20230721
  Serious: Yes (Death, Life-Threatening, Other)
  Sender: FDA-Public Use
  Company Number: TR-SUN PHARMACEUTICAL INDUSTRIES LTD-2023R1-390604

PATIENT

DRUGS (4)
  1. DICLOFENAC SODIUM [Suspect]
     Active Substance: DICLOFENAC SODIUM
     Indication: Product used for unknown indication
     Dosage: 50 MILLIGRAM, DAILY
     Route: 064
  2. FAVIPIRAVIR [Suspect]
     Active Substance: FAVIPIRAVIR
     Indication: Product used for unknown indication
     Dosage: 1600 MILLIGRAM, BID LOADING DOSE
     Route: 064
  3. FAVIPIRAVIR [Suspect]
     Active Substance: FAVIPIRAVIR
     Dosage: 1600 MILLIGRAM, BID MAINTENANCE DOSE
     Route: 064
  4. ORNIDAZOLE [Suspect]
     Active Substance: ORNIDAZOLE
     Indication: Product used for unknown indication
     Dosage: 1000 MILLIGRAM, DAILY
     Route: 064

REACTIONS (3)
  - Death [Fatal]
  - Foetal exposure during pregnancy [Unknown]
  - Premature baby [Unknown]
